FAERS Safety Report 9103194 (Version 1)
Quarter: 2013Q1

REPORT INFORMATION
  Report Type: Spontaneous
  Country: IT (occurrence: IT)
  Receive Date: 20130219
  Receipt Date: 20130219
  Transmission Date: 20140127
  Serious: Yes (Hospitalization)
  Sender: FDA-Public Use
  Company Number: PHHY2013IT015127

PATIENT
  Sex: Female

DRUGS (4)
  1. VOLTAREN [Suspect]
     Indication: BACK PAIN
     Dosage: 75 MG/ 3 ML
     Route: 030
     Dates: start: 20130124, end: 20130124
  2. SELOKEN [Concomitant]
     Indication: CARDIOMYOPATHY
     Dosage: 100 MG
  3. TOTALIP [Concomitant]
     Dosage: 10 MG
  4. CARDIOASPIRIN [Concomitant]
     Indication: CARDIOMYOPATHY
     Dosage: 100 MG

REACTIONS (4)
  - Local swelling [Recovering/Resolving]
  - Haematemesis [Recovering/Resolving]
  - Dyspepsia [Recovering/Resolving]
  - Nausea [Recovering/Resolving]
